FAERS Safety Report 8776195 (Version 3)
Quarter: 2012Q4

REPORT INFORMATION
  Report Type: 
  Country: IT (occurrence: IT)
  Receive Date: 20120910
  Receipt Date: 20120926
  Transmission Date: 20130627
  Serious: Yes (Hospitalization, Other)
  Sender: FDA-Public Use
  Company Number: IT-PFIZER INC-2012220753

PATIENT
  Age: 29 Year
  Sex: Female

DRUGS (5)
  1. XANAX [Suspect]
     Indication: INTENTIONAL SELF-INJURY
     Dosage: 10 mg, total dose
     Route: 048
     Dates: start: 20120904, end: 20120904
  2. MIRTAZAPINE [Suspect]
     Indication: INTENTIONAL SELF-INJURY
     Dosage: 600 mg, total dose
     Route: 048
     Dates: start: 20120904, end: 20120904
  3. DEPAKIN [Suspect]
     Dosage: 10 DF, total dose
     Route: 048
     Dates: start: 20120904, end: 20120904
  4. ZARELIS [Concomitant]
     Dosage: 2475 mg
  5. VALDORM [Concomitant]
     Dosage: 220 mg

REACTIONS (7)
  - Overdose [Unknown]
  - Intentional overdose [Unknown]
  - Intentional self-injury [Recovering/Resolving]
  - Sopor [Recovering/Resolving]
  - Toxicity to various agents [Unknown]
  - Agitation [Unknown]
  - Anticonvulsant drug level above therapeutic [Recovering/Resolving]
